FAERS Safety Report 15135232 (Version 1)
Quarter: 2018Q3

REPORT INFORMATION
  Report Type: Spontaneous
  Country: US (occurrence: US)
  Receive Date: 20180616
  Receipt Date: 20180616
  Transmission Date: 20181010
  Serious: No
  Sender: FDA-Public Use
  Company Number: None

PATIENT
  Age: 6 Year
  Sex: Male

DRUGS (1)
  1. NEUPOGEN [Suspect]
     Active Substance: FILGRASTIM
     Dates: start: 20180601, end: 20180616

REACTIONS (2)
  - Product physical issue [None]
  - Incorrect dose administered [None]

NARRATIVE: CASE EVENT DATE: 20180616
